FAERS Safety Report 8654939 (Version 2)
Quarter: 2013Q1

REPORT INFORMATION
  Report Type: Spontaneous
  Country: US (occurrence: US)
  Receive Date: 20120709
  Receipt Date: 20130107
  Transmission Date: 20140127
  Serious: Yes (Other)
  Sender: FDA-Public Use
  Company Number: US-ASTRAZENECA-2012SE44495

PATIENT
  Age: 70 Year
  Sex: Female
  Weight: 30.8 kg

DRUGS (13)
  1. NEXIUM [Suspect]
     Indication: GASTROOESOPHAGEAL REFLUX DISEASE
     Route: 048
     Dates: start: 2008
  2. NEXIUM [Suspect]
     Indication: GASTROOESOPHAGEAL REFLUX DISEASE
     Route: 048
     Dates: start: 2008
  3. NEXIUM [Suspect]
     Indication: GASTROOESOPHAGEAL REFLUX DISEASE
     Route: 048
     Dates: start: 201209
  4. NEXIUM [Suspect]
     Indication: GASTROOESOPHAGEAL REFLUX DISEASE
     Route: 048
     Dates: start: 201209
  5. CRESTOR [Suspect]
     Indication: BLOOD CHOLESTEROL ABNORMAL
     Route: 048
  6. SPIRIVA [Concomitant]
     Indication: EMPHYSEMA
     Route: 055
  7. ADVAIR [Concomitant]
     Indication: EMPHYSEMA
  8. DALIRESP [Concomitant]
     Indication: EMPHYSEMA
  9. ANASTROZOLE [Concomitant]
     Indication: NEOPLASM MALIGNANT
     Route: 048
  10. FENTANYL [Concomitant]
     Indication: PAIN
  11. NUCYNTA [Concomitant]
     Indication: PAIN
  12. GABAPENTIN [Concomitant]
     Indication: PAIN
  13. HYDROXYZINE [Concomitant]
     Indication: MULTIPLE ALLERGIES

REACTIONS (10)
  - Breast cancer [Unknown]
  - Arteriosclerosis [Unknown]
  - Fall [Unknown]
  - Spinal fracture [Unknown]
  - Osteoporosis [Unknown]
  - Muscle spasms [Unknown]
  - Hypoacusis [Unknown]
  - Gastrooesophageal reflux disease [Unknown]
  - Blood magnesium decreased [Unknown]
  - Drug dose omission [Unknown]
